FAERS Safety Report 7773939-7 (Version None)
Quarter: 2011Q3

REPORT INFORMATION
  Report Type: 
  Country: None (occurrence: None)
  Receive Date: 20110923
  Receipt Date: 20110919
  Transmission Date: 20111222
  Serious: Yes (Hospitalization, Other)
  Sender: FDA-Public Use
  Company Number: DE-ABBOTT-11P-062-0714343-00

PATIENT
  Sex: Female
  Weight: 60 kg

DRUGS (4)
  1. GLUKOCORTICOIDS [Concomitant]
     Indication: RHEUMATOID ARTHRITIS
     Dosage: 12 MILLIGRAMS DAILY
     Dates: start: 20110727
  2. LEFLUNOMIDE [Concomitant]
     Indication: PRODUCT USED FOR UNKNOWN INDICATION
     Dates: end: 20110101
  3. HUMIRA [Suspect]
     Dates: start: 20110301
  4. HUMIRA [Suspect]
     Indication: RHEUMATOID ARTHRITIS
     Route: 058
     Dates: start: 20030701, end: 20101223

REACTIONS (4)
  - PNEUMONIA [None]
  - CHEST PAIN [None]
  - INFECTION [None]
  - TACHYPNOEA [None]
